FAERS Safety Report 10530937 (Version 1)
Quarter: 2014Q4

REPORT INFORMATION
  Report Type: Spontaneous
  Country: US (occurrence: None)
  Receive Date: 20141020
  Receipt Date: 20141020
  Transmission Date: 20150528
  Serious: No
  Sender: FDA-Public Use
  Company Number: None

PATIENT

DRUGS (2)
  1. FOSPHENYTOIN SODIUM. [Suspect]
     Active Substance: FOSPHENYTOIN SODIUM
     Dosage: INJECTABLE, INJECTION, 100 MG PE/2 ML (50 M, VIAL, 2 ML
  2. FOSPHENYTOIN [Suspect]
     Active Substance: FOSPHENYTOIN\FOSPHENYTOIN SODIUM
     Dosage: INJECTABLE, INJECTION, 100 MG PE IN 2 ML (5, VIAL, 2 ML?

REACTIONS (1)
  - Product label confusion [None]
